FAERS Safety Report 12724703 (Version 1)
Quarter: 2016Q3

REPORT INFORMATION
  Report Type: Other
  Country: US (occurrence: US)
  Receive Date: 20160908
  Receipt Date: 20160908
  Transmission Date: 20161109
  Serious: No
  Sender: FDA-Public Use
  Company Number: US-COL_22949_2016

PATIENT
  Sex: Female

DRUGS (2)
  1. COLGATE TOTAL CLEAN MINT [Suspect]
     Active Substance: SODIUM FLUORIDE\TRICLOSAN
     Indication: PRODUCT USED FOR UNKNOWN INDICATION
     Dosage: COVERED HALF THE HEAD OF HER TOOTHBRUSH/TID/
     Route: 048
     Dates: end: 201605
  2. NEXIUM [Concomitant]
     Active Substance: ESOMEPRAZOLE MAGNESIUM
     Indication: PRODUCT USED FOR UNKNOWN INDICATION
     Dosage: NI/

REACTIONS (2)
  - Gingival disorder [None]
  - Gingival pain [Recovered/Resolved]

NARRATIVE: CASE EVENT DATE: 201605
